FAERS Safety Report 6536137-0 (Version None)
Quarter: 2010Q1

REPORT INFORMATION
  Report Type: 
  Country: None (occurrence: None)
  Receive Date: 20100113
  Receipt Date: 20091105
  Transmission Date: 20100710
  Serious: No
  Sender: FDA-Public Use
  Company Number: US-ALLERGAN-0914385US

PATIENT
  Age: 55 Year
  Sex: Female

DRUGS (1)
  1. LATISSE [Suspect]
     Indication: GROWTH OF EYELASHES
     Dosage: UNK
     Route: 061
     Dates: start: 20090801, end: 20091005

REACTIONS (4)
  - EYE PAIN [None]
  - EYELIDS PRURITUS [None]
  - SKIN HYPERPIGMENTATION [None]
  - SWELLING FACE [None]
